FAERS Safety Report 4394267-6 (Version None)
Quarter: 2004Q3

REPORT INFORMATION
  Report Type: 
  Country: None (occurrence: None)
  Receive Date: 20040707
  Receipt Date: 20040624
  Transmission Date: 20050211
  Serious: Yes (Hospitalization)
  Sender: FDA-Public Use
  Company Number: HQWYE258229JUL03

PATIENT
  Age: 44 Year
  Sex: Female
  Weight: 59.02 kg

DRUGS (7)
  1. EFFEXOR XR [Suspect]
     Indication: DEPRESSION
     Dosage: SEE IMAGE
     Route: 048
     Dates: start: 20030624, end: 20030630
  2. EFFEXOR XR [Suspect]
     Indication: DEPRESSION
     Dosage: SEE IMAGE
     Route: 048
     Dates: start: 20030713, end: 20030701
  3. EFFEXOR XR [Suspect]
     Indication: DEPRESSION
     Dosage: SEE IMAGE
     Route: 048
     Dates: start: 20030701, end: 20030710
  4. EFFEXOR XR [Suspect]
     Indication: DEPRESSION
     Dosage: SEE IMAGE
     Route: 048
     Dates: start: 20030711, end: 20030712
  5. EFFEXOR XR [Suspect]
     Indication: DEPRESSION
     Dosage: SEE IMAGE
     Route: 048
     Dates: start: 20030701, end: 20030715
  6. CELEBREX [Concomitant]
  7. VICODIN [Concomitant]

REACTIONS (19)
  - ACTIVITIES OF DAILY LIVING IMPAIRED [None]
  - AGITATION [None]
  - DISTURBANCE IN ATTENTION [None]
  - DRUG INEFFECTIVE [None]
  - DRUG WITHDRAWAL SYNDROME [None]
  - DRY MOUTH [None]
  - FEELING JITTERY [None]
  - HEADACHE [None]
  - INSOMNIA [None]
  - MEDICATION ERROR [None]
  - MUSCLE TIGHTNESS [None]
  - MUSCLE TWITCHING [None]
  - NAUSEA [None]
  - PANIC ATTACK [None]
  - PARAESTHESIA [None]
  - TACHYCARDIA [None]
  - VISION BLURRED [None]
  - VISUAL DISTURBANCE [None]
  - WEIGHT DECREASED [None]
